FAERS Safety Report 18057475 (Version 3)
Quarter: 2021Q3

REPORT INFORMATION
  Report Type: Report from Study
  Country: None (occurrence: FR)
  Receive Date: 20200723
  Receipt Date: 20210923
  Transmission Date: 20211014
  Serious: Yes (Death, Other)
  Sender: FDA-Public Use
  Company Number: FR-ABBVIE-20K-056-3495025-00

PATIENT
  Sex: Female
  Weight: 60 kg

DRUGS (4)
  1. VENETOCLAX. [Suspect]
     Active Substance: VENETOCLAX
     Indication: CHRONIC LYMPHOCYTIC LEUKAEMIA
     Route: 048
     Dates: start: 20190808, end: 20190813
  2. VENETOCLAX. [Suspect]
     Active Substance: VENETOCLAX
     Route: 048
     Dates: start: 20190814, end: 20190815
  3. BACTRIM [Concomitant]
     Active Substance: SULFAMETHOXAZOLE\TRIMETHOPRIM
     Indication: PROPHYLAXIS
     Dates: start: 20190808
  4. ZELITREX [Concomitant]
     Active Substance: VALACYCLOVIR HYDROCHLORIDE
     Indication: PROPHYLAXIS
     Dates: start: 20190808

REACTIONS (2)
  - Richter^s syndrome [Unknown]
  - Disease progression [Unknown]

NARRATIVE: CASE EVENT DATE: 20190815
